FAERS Safety Report 9285564 (Version 1)
Quarter: 2013Q2

REPORT INFORMATION
  Report Type: Spontaneous
  Country: US (occurrence: None)
  Receive Date: 20130510
  Receipt Date: 20130510
  Transmission Date: 20140414
  Serious: No
  Sender: FDA-Public Use
  Company Number: None

PATIENT
  Age: 62 Year
  Sex: Female
  Weight: 77.11 kg

DRUGS (1)
  1. COPAXONE [Suspect]
     Indication: MULTIPLE SCLEROSIS
     Dates: start: 19991015, end: 20130415

REACTIONS (10)
  - Flushing [None]
  - Chest discomfort [None]
  - Back pain [None]
  - Palpitations [None]
  - Dyspnoea [None]
  - Erythema [None]
  - Erythema [None]
  - Pruritus [None]
  - Dyspepsia [None]
  - Adverse drug reaction [None]
